FAERS Safety Report 8770838 (Version 3)
Quarter: 2012Q4

REPORT INFORMATION
  Report Type: 
  Country: CN (occurrence: CN)
  Receive Date: 20120906
  Receipt Date: 20120920
  Transmission Date: 20130627
  Serious: Yes (Death, Other)
  Sender: FDA-Public Use
  Company Number: CN-PFIZER INC-2012216905

PATIENT
  Age: 59 Year
  Sex: Male

DRUGS (2)
  1. SUTENT [Suspect]
     Indication: RENAL CELL CARCINOMA
     Dosage: 37.5 mg, 1x/day
     Route: 048
     Dates: start: 201202, end: 2012
  2. SUTENT [Suspect]
     Dosage: 12.5 mg, 1x/day
     Route: 048
     Dates: start: 2012, end: 201207

REACTIONS (2)
  - Death [Fatal]
  - Azotaemia [Unknown]
